FAERS Safety Report 12660338 (Version 1)
Quarter: 2016Q3

REPORT INFORMATION
  Report Type: Spontaneous
  Country: FR (occurrence: FR)
  Receive Date: 20160817
  Receipt Date: 20160817
  Transmission Date: 20161109
  Serious: Yes (Hospitalization)
  Sender: FDA-Public Use
  Company Number: FR-PFIZER INC-2016382600

PATIENT
  Age: 89 Year
  Sex: Male

DRUGS (12)
  1. ALLOPURINOL. [Concomitant]
     Active Substance: ALLOPURINOL
  2. MACROGOL [Concomitant]
     Active Substance: POLYETHYLENE GLYCOLS
  3. PANTOPRAZOLE [Concomitant]
     Active Substance: PANTOPRAZOLE SODIUM
  4. KARDEGIC [Concomitant]
     Active Substance: ASPIRIN LYSINE
  5. TRINITRINE [Concomitant]
     Active Substance: NITROGLYCERIN
  6. ATORVASTATINE /01326101/ [Concomitant]
     Active Substance: ATORVASTATIN
  7. BACTRIM [Suspect]
     Active Substance: SULFAMETHOXAZOLE\TRIMETHOPRIM
     Indication: CULTURE URINE POSITIVE
     Dosage: 2 DF, DAILY
     Route: 048
     Dates: start: 20160621, end: 20160629
  8. RAMIPRIL. [Concomitant]
     Active Substance: RAMIPRIL
  9. BISOPROLOL /00802602/ [Concomitant]
     Active Substance: BISOPROLOL
  10. TRIFLUCAN [Suspect]
     Active Substance: FLUCONAZOLE
     Indication: CULTURE URINE POSITIVE
     Dosage: 50 MG, DAILY
     Route: 048
     Dates: start: 20160621, end: 20160629
  11. TAMSULOSINE [Concomitant]
     Active Substance: TAMSULOSIN HYDROCHLORIDE
  12. AMLODIPINE [Concomitant]
     Active Substance: AMLODIPINE BESYLATE

REACTIONS (5)
  - Hyperkalaemia [Recovered/Resolved]
  - Diarrhoea [Recovered/Resolved]
  - Condition aggravated [Recovered/Resolved]
  - Rash maculo-papular [Unknown]
  - Renal impairment [Recovered/Resolved]

NARRATIVE: CASE EVENT DATE: 20160627
